FAERS Safety Report 16976913 (Version 3)
Quarter: 2020Q3

REPORT INFORMATION
  Report Type: Spontaneous
  Country: JP (occurrence: JP)
  Receive Date: 20191030
  Receipt Date: 20200701
  Transmission Date: 20201102
  Serious: Yes (Other)
  Sender: FDA-Public Use
  Company Number: JP-BRISTOL-MYERS SQUIBB COMPANY-BMS-2019-103937

PATIENT
  Age: 67 Year
  Sex: Female

DRUGS (1)
  1. OPDIVO [Suspect]
     Active Substance: NIVOLUMAB
     Indication: METASTATIC MALIGNANT MELANOMA
     Dosage: UNK
     Route: 041

REACTIONS (1)
  - Immune-mediated enterocolitis [Unknown]
